FAERS Safety Report 9940494 (Version 2)
Quarter: 2014Q1

REPORT INFORMATION
  Report Type: Spontaneous
  Country: CA (occurrence: CA)
  Receive Date: 20140303
  Receipt Date: 20140307
  Transmission Date: 20141002
  Serious: Yes (Death)
  Sender: FDA-Public Use
  Company Number: CA-PFIZER INC-2014055467

PATIENT
  Age: 37 Year
  Sex: Female

DRUGS (1)
  1. REVATIO [Suspect]
     Indication: CONNECTIVE TISSUE DISORDER
     Dosage: 20 MG, 2X/DAY
     Dates: start: 20080122

REACTIONS (2)
  - Death [Fatal]
  - Off label use [Unknown]
